FAERS Safety Report 7952137-8 (Version None)
Quarter: 2011Q4

REPORT INFORMATION
  Report Type: 
  Country: None (occurrence: None)
  Receive Date: 20111201
  Receipt Date: 20111128
  Transmission Date: 20120403
  Serious: Yes (Life-Threatening, Hospitalization)
  Sender: FDA-Public Use
  Company Number: PHEH2011US010326

PATIENT
  Sex: Male

DRUGS (1)
  1. RECLAST [Suspect]
     Dosage: UNK UKN, UNK
     Route: 042
     Dates: start: 20110819

REACTIONS (9)
  - DECREASED APPETITE [None]
  - CHILLS [None]
  - NECK PAIN [None]
  - PYREXIA [None]
  - CHEST PAIN [None]
  - FEELING ABNORMAL [None]
  - NAUSEA [None]
  - MYOCARDIAL INFARCTION [None]
  - VOMITING [None]
